FAERS Safety Report 7842423-4 (Version None)
Quarter: 2011Q4

REPORT INFORMATION
  Report Type: 
  Country: None (occurrence: None)
  Receive Date: 20111025
  Receipt Date: 20111012
  Transmission Date: 20120403
  Serious: Yes (Hospitalization, Other)
  Sender: FDA-Public Use
  Company Number: PHHY2011FI90912

PATIENT
  Age: 64 Year
  Sex: Female

DRUGS (13)
  1. NEXIUM [Concomitant]
     Indication: OESOPHAGITIS
  2. VAGIFEM [Concomitant]
  3. CLOZAPINE [Suspect]
     Indication: SCHIZOPHRENIA
     Dates: start: 20110902
  4. QUETIAPINE [Concomitant]
  5. LORAZEPAM [Concomitant]
     Dosage: 2 MG, TID
  6. THYROXIN [Concomitant]
     Indication: HYPOTHYROIDISM
  7. SYMBICORT [Concomitant]
     Indication: ASTHMA
  8. DIFLUCAN [Concomitant]
     Dosage: 1 DF,
  9. OLANZAPINE [Concomitant]
     Dosage: 20 MG IN EVENING
  10. VENTOLIN [Concomitant]
     Indication: ASTHMA
  11. PRIMASPAN [Concomitant]
     Indication: ASTHMA
     Dosage: 100 MG, QD
  12. SIMVASTATIN [Concomitant]
     Dosage: 20 MG ONCE A DAY
  13. PREDNISOLONE [Concomitant]
     Dates: start: 20110930

REACTIONS (16)
  - MUSCLE MASS [None]
  - ERYTHEMA MIGRANS [None]
  - HAEMATOCHEZIA [None]
  - RED BLOOD CELL SEDIMENTATION RATE INCREASED [None]
  - SKIN REACTION [None]
  - MUSCLE TWITCHING [None]
  - C-REACTIVE PROTEIN INCREASED [None]
  - ERYTHEMA [None]
  - PRURITUS [None]
  - CANDIDIASIS [None]
  - TRANSFERRIN INCREASED [None]
  - HISTONE ANTIBODY POSITIVE [None]
  - HAEMATOCRIT DECREASED [None]
  - OEDEMA PERIPHERAL [None]
  - ANAEMIA [None]
  - EOSINOPHIL COUNT INCREASED [None]
